FAERS Safety Report 14145532 (Version 1)
Quarter: 2017Q4

REPORT INFORMATION
  Report Type: Spontaneous
  Country: JP (occurrence: JP)
  Receive Date: 20171031
  Receipt Date: 20171031
  Transmission Date: 20180321
  Serious: Yes (Other)
  Sender: FDA-Public Use
  Company Number: JP-JNJFOC-20171032771

PATIENT

DRUGS (1)
  1. ZYTIGA [Suspect]
     Active Substance: ABIRATERONE ACETATE
     Indication: HORMONE-REFRACTORY PROSTATE CANCER
     Route: 048

REACTIONS (15)
  - Anaemia [Unknown]
  - Diarrhoea [Unknown]
  - Renal failure [Unknown]
  - Malaise [Unknown]
  - Drug eruption [Unknown]
  - Hyperkalaemia [Unknown]
  - Alanine aminotransferase increased [Unknown]
  - Hypokalaemia [Unknown]
  - Oedema [Unknown]
  - Photophobia [Unknown]
  - Gastric ulcer [Unknown]
  - Constipation [Unknown]
  - Aspartate aminotransferase increased [Unknown]
  - Hypoalbuminaemia [Unknown]
  - Hyperglycaemia [Unknown]
